FAERS Safety Report 4958199-4 (Version None)
Quarter: 2006Q1

REPORT INFORMATION
  Report Type: 
  Country: None (occurrence: None)
  Receive Date: 20060324
  Receipt Date: 20060314
  Transmission Date: 20060701
  Serious: Yes (Other)
  Sender: FDA-Public Use
  Company Number: 2006029988

PATIENT
  Age: 89 Year
  Sex: Male

DRUGS (11)
  1. ALDACTONE [Suspect]
     Indication: HYPERTENSION
     Dosage: 25 MG, ORAL
     Route: 048
     Dates: start: 20060223, end: 20060228
  2. LASIX [Concomitant]
  3. TORSEMIDE [Concomitant]
  4. DIGOXIN [Concomitant]
  5. WARFARIN SODIUM [Concomitant]
  6. ISOSORBIDE MONONITRATE [Concomitant]
  7. FAMOTIDINE [Concomitant]
  8. CELTECT OXATOMIDE) [Concomitant]
  9. CELESTAMINE TAB [Concomitant]
  10. MAGNESIUM OXIDE (MAGNESIUM OXIDE) [Concomitant]
  11. PANTOSIN (PANTETHINE) [Concomitant]

REACTIONS (2)
  - BLOOD POTASSIUM INCREASED [None]
  - HAEMOLYSIS [None]
